FAERS Safety Report 24620693 (Version 1)
Quarter: 2024Q4

REPORT INFORMATION
  Report Type: Spontaneous
  Country: US (occurrence: None)
  Receive Date: 20241114
  Receipt Date: 20241114
  Transmission Date: 20250114
  Serious: Yes (Hospitalization, Congenital Anomaly, Other)
  Sender: Public
  Company Number: None

PATIENT
  Age: 0 Year
  Sex: Female
  Weight: 1.59 kg

DRUGS (2)
  1. CITALOPRAM [Suspect]
     Active Substance: CITALOPRAM
  2. maternal medication: citalopram [Concomitant]

REACTIONS (10)
  - Premature baby [None]
  - Maternal drugs affecting foetus [None]
  - Bradycardia [None]
  - Neonatal behavioural syndrome [None]
  - Apnoea [None]
  - Haemangioma [None]
  - Coronary sinus dilatation [None]
  - Aortic valve disease [None]
  - Ventricular septal defect [None]
  - Patent ductus arteriosus [None]

NARRATIVE: CASE EVENT DATE: 20210909
